FAERS Safety Report 19871339 (Version 1)
Quarter: 2021Q3

REPORT INFORMATION
  Report Type: Spontaneous
  Country: US (occurrence: US)
  Receive Date: 20210922
  Receipt Date: 20210922
  Transmission Date: 20211014
  Serious: No
  Sender: FDA-Public Use
  Company Number: None

PATIENT
  Sex: Female

DRUGS (1)
  1. OTEZLA [Suspect]
     Active Substance: APREMILAST
     Indication: PSORIASIS
     Dosage: OTHER DOSE:1 TABLET;?
     Route: 048
     Dates: start: 20210409

REACTIONS (3)
  - Pruritus [None]
  - Condition aggravated [None]
  - Skin discolouration [None]
